FAERS Safety Report 6143857-9 (Version None)
Quarter: 2009Q2

REPORT INFORMATION
  Report Type: 
  Country: None (occurrence: None)
  Receive Date: 20090403
  Receipt Date: 20090401
  Transmission Date: 20091009
  Serious: Yes (Hospitalization)
  Sender: FDA-Public Use
  Company Number: US-GILEAD-2009-0021252

PATIENT
  Sex: Female
  Weight: 79.45 kg

DRUGS (10)
  1. LETAIRIS [Suspect]
     Indication: PULMONARY ARTERIAL HYPERTENSION
     Route: 048
     Dates: start: 20080520
  2. LIPITOR [Concomitant]
  3. ADVAIR HFA [Concomitant]
  4. SPIRIVA [Concomitant]
  5. PROAIR HFA [Concomitant]
  6. PREDNISONE [Concomitant]
  7. PLAQUENIL [Concomitant]
  8. NEXIUM [Concomitant]
  9. POTASSIUM CHLORIDE [Concomitant]
  10. AVETAVOLAMID [Concomitant]

REACTIONS (1)
  - CEREBROVASCULAR ACCIDENT [None]
